FAERS Safety Report 8812364 (Version 5)
Quarter: 2013Q4

REPORT INFORMATION
  Report Type: Report from Study
  Country: JP (occurrence: JP)
  Receive Date: 20120927
  Receipt Date: 20131217
  Transmission Date: 20140711
  Serious: Yes (Other)
  Sender: FDA-Public Use
  Company Number: JP-VERTEX PHARMACEUTICAL INC.-2012-021787

PATIENT
  Age: 36 Year
  Sex: Male

DRUGS (5)
  1. VX-950 (TELAPREVIR) [Suspect]
     Indication: CHRONIC HEPATITIS C
     Dosage: 1500 MG, QD
     Route: 048
     Dates: start: 20120718, end: 20121010
  2. RIBAVIRIN [Concomitant]
     Dosage: 1000 MG, QD
     Route: 048
     Dates: start: 20120718, end: 20130111
  3. PEGINTERFERON ALFA-2B [Concomitant]
     Dosage: 1.5 ?G/KG, QW
     Route: 058
     Dates: start: 20120718, end: 20120724
  4. PEGINTERFERON ALFA-2B [Concomitant]
     Dosage: 1 ?G/KG, QW
     Route: 058
     Dates: start: 20120725, end: 20120815
  5. PEGINTERFERON ALFA-2B [Concomitant]
     Dosage: 1.0 ?G/KG, QW
     Route: 058
     Dates: start: 20120822, end: 20130104

REACTIONS (1)
  - Neutrophil count decreased [Recovered/Resolved]
